FAERS Safety Report 4494613-9 (Version None)
Quarter: 2004Q4

REPORT INFORMATION
  Report Type: 
  Country: None (occurrence: None)
  Receive Date: 20041105
  Receipt Date: 20030605
  Transmission Date: 20050328
  Serious: Yes (Hospitalization, Disabling, Other)
  Sender: FDA-Public Use
  Company Number: US-MERCK-0306USA00759

PATIENT
  Age: 54 Year
  Sex: Male
  Weight: 120 kg

DRUGS (18)
  1. VIOXX [Suspect]
     Indication: BACK PAIN
     Route: 048
     Dates: start: 20000401, end: 20010201
  2. VIOXX [Suspect]
     Route: 048
     Dates: start: 20010904
  3. VIOXX [Suspect]
     Route: 048
     Dates: start: 20010226, end: 20010901
  4. VIOXX [Suspect]
     Route: 048
     Dates: start: 20000104
  5. VIOXX [Suspect]
     Indication: PAIN IN EXTREMITY
     Route: 048
     Dates: start: 20000401, end: 20010201
  6. VIOXX [Suspect]
     Route: 048
     Dates: start: 20010904
  7. VIOXX [Suspect]
     Route: 048
     Dates: start: 20010226, end: 20010901
  8. VIOXX [Suspect]
     Route: 048
     Dates: start: 20000104
  9. BUSPAR [Concomitant]
     Route: 048
     Dates: start: 19990402, end: 20000510
  10. LORTAB [Concomitant]
     Route: 048
     Dates: start: 19990410, end: 20001102
  11. ZIAC [Concomitant]
     Indication: HYPERTENSION
     Route: 048
     Dates: start: 20000410, end: 20010225
  12. VICODIN [Concomitant]
     Indication: PAIN IN EXTREMITY
     Route: 048
     Dates: start: 20010225
  13. LIPITOR [Concomitant]
     Route: 048
     Dates: start: 20010707
  14. VALIUM [Concomitant]
     Route: 048
     Dates: start: 20010226, end: 20010927
  15. TALWIN [Concomitant]
     Route: 048
     Dates: start: 20010904, end: 20010927
  16. ULTRAM [Concomitant]
     Route: 048
     Dates: start: 20010904, end: 20010912
  17. SKELAXIN [Concomitant]
     Route: 048
     Dates: start: 20010927, end: 20011010
  18. TENYL [Concomitant]
     Route: 065
     Dates: start: 20010906, end: 20011011

REACTIONS (7)
  - ADVERSE EVENT [None]
  - ANGINA PECTORIS [None]
  - BLOOD PRESSURE INCREASED [None]
  - CARDIAC ARREST [None]
  - CONVULSION [None]
  - CORONARY ARTERY DISEASE [None]
  - MYOCARDIAL INFARCTION [None]
